FAERS Safety Report 20128313 (Version 1)
Quarter: 2021Q4

REPORT INFORMATION
  Report Type: Spontaneous
  Country: US (occurrence: US)
  Receive Date: 20211129
  Receipt Date: 20211129
  Transmission Date: 20220303
  Serious: Yes (Other)
  Sender: FDA-Public Use
  Company Number: US-JNJFOC-20211142028

PATIENT

DRUGS (1)
  1. BENADRYL ORIGINAL STRENGTH ITCH STOPPING [Suspect]
     Active Substance: DIPHENHYDRAMINE HYDROCHLORIDE\ZINC ACETATE
     Indication: Insomnia
     Route: 061

REACTIONS (3)
  - Loss of consciousness [Recovered/Resolved]
  - Intentional product misuse [Unknown]
  - Incorrect route of product administration [Unknown]
